FAERS Safety Report 9891648 (Version 3)
Quarter: 2014Q1

REPORT INFORMATION
  Report Type: Report from Study
  Country: US (occurrence: US)
  Receive Date: 20140212
  Receipt Date: 20140307
  Transmission Date: 20141002
  Serious: Yes (Hospitalization)
  Sender: FDA-Public Use
  Company Number: US-ACTELION-A-US2014-94174

PATIENT
  Age: 72 Year
  Sex: Male

DRUGS (2)
  1. VELETRI [Suspect]
     Indication: PULMONARY ARTERIAL HYPERTENSION
     Dosage: 52 NG/KG, PER MIN
     Route: 042
     Dates: start: 20130104
  2. COUMADIN [Concomitant]

REACTIONS (6)
  - Pneumonia [Unknown]
  - Respiratory tract infection [Unknown]
  - Productive cough [Unknown]
  - Oxygen saturation decreased [Unknown]
  - Wheezing [Unknown]
  - Pyrexia [Unknown]
